FAERS Safety Report 9196360 (Version 1)
Quarter: 2013Q1

REPORT INFORMATION
  Report Type: Spontaneous
  Country: US (occurrence: None)
  Receive Date: 20120709
  Receipt Date: 20120709
  Transmission Date: 20140127
  Serious: No
  Sender: FDA-Public Use
  Company Number: 2012HGS-003518

PATIENT
  Age: 68 Year
  Sex: Female
  Weight: 63.96 kg

DRUGS (7)
  1. BENLYSTA [Suspect]
     Indication: SYSTEMIC LUPUS ERYTHEMATOSUS
     Dosage: 1 IN 28 D, INTRAVENOUS DRIP
     Route: 041
     Dates: start: 20120220
  2. PREDNISONE (PREDNISONE) (PREDNISONE) [Concomitant]
  3. PRILOSEC (OMEPRAZOLE) (OMEPRAZOLE) [Concomitant]
  4. WARFARIN (WARFARIN) (WARFARIN) [Concomitant]
  5. LIPITOR (ATORVASTATIN CALCIUM) (ATORVASTATIN CALCIUM) [Concomitant]
  6. METHOTREXATE (METHOTREXATE) (METHOTREXATE) [Concomitant]
  7. PROPANOLOL (PROPRANOLOL) (PROPRANOLOL) [Concomitant]

REACTIONS (1)
  - Diarrhoea [None]
